FAERS Safety Report 4945458-4 (Version None)
Quarter: 2006Q1

REPORT INFORMATION
  Report Type: 
  Country: None (occurrence: None)
  Receive Date: 20060316
  Receipt Date: 20060210
  Transmission Date: 20060701
  Serious: Yes (Disabling)
  Sender: FDA-Public Use
  Company Number: JP-JPN-A200600555

PATIENT
  Age: 66 Year
  Sex: Female

DRUGS (11)
  1. RELENZA [Suspect]
     Indication: INFLUENZA
     Dosage: 10MG TWICE PER DAY
     Route: 055
     Dates: start: 20060128, end: 20060129
  2. HUSCODE [Suspect]
     Indication: COUGH
     Dosage: 2U THREE TIMES PER DAY
     Route: 048
     Dates: start: 20060127
  3. NAUZELIN [Concomitant]
     Indication: NAUSEA
     Dosage: 30MG PER DAY
     Route: 048
     Dates: start: 20060128, end: 20060131
  4. MEDICON [Concomitant]
     Indication: COUGH
     Dosage: 2TAB THREE TIMES PER DAY
     Route: 048
     Dates: start: 20060128, end: 20060208
  5. UNKNOWN DRUG [Concomitant]
     Indication: COUGH
     Dosage: 3U PER DAY
     Route: 048
     Dates: start: 20060127, end: 20060201
  6. GLORIAMIN [Concomitant]
     Dosage: 2.01G PER DAY
     Route: 048
     Dates: start: 20060127, end: 20060208
  7. TAMIFLU [Concomitant]
     Indication: INFLUENZA
     Dosage: 150MG PER DAY
     Route: 048
     Dates: start: 20060130, end: 20060202
  8. SOLDEM 3A [Concomitant]
     Indication: DEHYDRATION
     Dosage: 500ML PER DAY
     Route: 042
     Dates: start: 20060203, end: 20060204
  9. SOLDEM 3A [Concomitant]
     Dosage: 200ML PER DAY
     Route: 042
     Dates: start: 20060206, end: 20060206
  10. SUBVITAN N [Concomitant]
     Dosage: 1U PER DAY
     Route: 042
     Dates: start: 20060203, end: 20060204
  11. SUBVITAN N [Concomitant]
     Route: 042
     Dates: start: 20060206, end: 20060206

REACTIONS (7)
  - ANOREXIA [None]
  - ANOSMIA [None]
  - DYSGEUSIA [None]
  - DYSURIA [None]
  - NASAL CONGESTION [None]
  - PAROSMIA [None]
  - VISUAL ACUITY REDUCED [None]
